FAERS Safety Report 5913877-5 (Version None)
Quarter: 2008Q4

REPORT INFORMATION
  Report Type: 
  Country: None (occurrence: None)
  Receive Date: 20081009
  Receipt Date: 20081002
  Transmission Date: 20090506
  Serious: Yes (Death, Other)
  Sender: FDA-Public Use
  Company Number: B0529153A

PATIENT
  Age: 61 Year
  Sex: Female

DRUGS (4)
  1. WELLBUTRIN [Suspect]
     Indication: DEPRESSION
     Dosage: 150MG PER DAY
     Route: 048
  2. VENLAFAXINE HYDROCHLORIDE [Suspect]
     Indication: DEPRESSION
     Route: 065
  3. ARIPIPRAZOLE [Suspect]
     Route: 065
  4. SINEMET [Concomitant]
     Indication: PARKINSON'S DISEASE
     Route: 065

REACTIONS (7)
  - DRUG INTERACTION [None]
  - EXTRAPYRAMIDAL DISORDER [None]
  - NEUROLEPTIC MALIGNANT SYNDROME [None]
  - NOSOCOMIAL INFECTION [None]
  - PNEUMONIA ASPIRATION [None]
  - PYREXIA [None]
  - SEPSIS [None]
